FAERS Safety Report 17274267 (Version 2)
Quarter: 2020Q1

REPORT INFORMATION
  Report Type: Spontaneous
  Country: ES (occurrence: ES)
  Receive Date: 20200115
  Receipt Date: 20200203
  Transmission Date: 20200409
  Serious: Yes (Death)
  Sender: FDA-Public Use
  Company Number: ES-BAYER-2020-005242

PATIENT
  Age: 57 Year
  Sex: Male

DRUGS (1)
  1. JIVI [Suspect]
     Active Substance: DAMOCTOCOG ALFA PEGOL
     Indication: HAEMOPHILIA
     Dosage: 1 DF, TIW
     Dates: start: 201912

REACTIONS (4)
  - Cardio-respiratory arrest [Fatal]
  - Peritoneal haemorrhage [Fatal]
  - Gallbladder rupture [Fatal]
  - Abdominal pain upper [None]

NARRATIVE: CASE EVENT DATE: 20191226
